FAERS Safety Report 24693126 (Version 1)
Quarter: 2024Q4

REPORT INFORMATION
  Report Type: Spontaneous
  Country: ES (occurrence: ES)
  Receive Date: 20241203
  Receipt Date: 20241203
  Transmission Date: 20250114
  Serious: Yes (Other)
  Sender: ALEXION PHARMACEUTICALS
  Company Number: 2024CP16102

PATIENT
  Age: 80 Year

DRUGS (8)
  1. QUETIAPINE [Suspect]
     Active Substance: QUETIAPINE
     Indication: Product used for unknown indication
     Route: 065
  2. QUETIAPINE [Suspect]
     Active Substance: QUETIAPINE
  3. QUETIAPINE [Suspect]
     Active Substance: QUETIAPINE
     Route: 065
  4. QUETIAPINE [Suspect]
     Active Substance: QUETIAPINE
  5. DRONEDARONE [Suspect]
     Active Substance: DRONEDARONE
     Indication: Atrial fibrillation
  6. DRONEDARONE [Suspect]
     Active Substance: DRONEDARONE
     Route: 065
  7. WARFARIN [Concomitant]
     Active Substance: WARFARIN
  8. ASPIRIN [Concomitant]
     Active Substance: ASPIRIN

REACTIONS (5)
  - Electrocardiogram QT prolonged [Recovering/Resolving]
  - Drug interaction [Recovering/Resolving]
  - Ventricular fibrillation [Recovering/Resolving]
  - Haematuria [Recovering/Resolving]
  - Hypertension [Recovering/Resolving]
